FAERS Safety Report 10404630 (Version 1)
Quarter: 2014Q2

REPORT INFORMATION
  Report Type: Spontaneous
  Country: US (occurrence: None)
  Receive Date: 20140603
  Receipt Date: 20140603
  Transmission Date: 20141212
  Serious: Yes (Life-Threatening)
  Sender: FDA-Public Use
  Company Number: FK201303461

PATIENT
  Sex: 0

DRUGS (2)
  1. PROTAMINE SULFATE INJECTION, USP (PROTAMINE SULFATE) (PROTAMINE SULFATE) [Suspect]
     Indication: CARDIAC OPERATION
  2. HEPARIN SODIUM INJECTION, USP (HEPARIN SODIUM) (HEPARIN SODIUM) [Suspect]
     Indication: CARDIAC OPERATION

REACTIONS (1)
  - Hypotension [None]
